FAERS Safety Report 9109633 (Version 1)
Quarter: 2013Q1

REPORT INFORMATION
  Report Type: Spontaneous
  Country: US (occurrence: US)
  Receive Date: 20130222
  Receipt Date: 20130222
  Transmission Date: 20140127
  Serious: No
  Sender: FDA-Public Use
  Company Number: US-PFIZER INC-2013063909

PATIENT
  Sex: Male

DRUGS (1)
  1. HALCION [Suspect]
     Indication: INSOMNIA
     Dosage: 0.125 MG, UNK

REACTIONS (3)
  - Glossodynia [Unknown]
  - Disorientation [Unknown]
  - Dizziness [Unknown]
